FAERS Safety Report 25239451 (Version 1)
Quarter: 2025Q2

REPORT INFORMATION
  Report Type: Spontaneous
  Country: US (occurrence: None)
  Receive Date: 20250424
  Receipt Date: 20250424
  Transmission Date: 20250717
  Serious: No
  Sender: FDA-CTU
  Company Number: None

PATIENT
  Sex: Female

DRUGS (1)
  1. HUMIRA [Suspect]
     Active Substance: ADALIMUMAB

REACTIONS (5)
  - Device malfunction [None]
  - Fear [None]
  - Injection site pain [None]
  - Accidental exposure to product [None]
  - Exposure via skin contact [None]

NARRATIVE: CASE EVENT DATE: 20250424
